FAERS Safety Report 9870900 (Version 2)
Quarter: 2014Q1

REPORT INFORMATION
  Report Type: Spontaneous
  Country: US (occurrence: US)
  Receive Date: 20140205
  Receipt Date: 20140205
  Transmission Date: 20141002
  Serious: Yes (Other)
  Sender: FDA-Public Use
  Company Number: US-GE HEALTHCARE MEDICAL DIAGNOSTICS-OSCN-PR-0801S-0048

PATIENT
  Age: 39 Year
  Sex: Male

DRUGS (1)
  1. OMNISCAN [Suspect]
     Indication: JOINT SWELLING
     Route: 042
     Dates: start: 20071227, end: 20071227

REACTIONS (3)
  - Cerebrovascular accident [Not Recovered/Not Resolved]
  - Pruritus [Not Recovered/Not Resolved]
  - Renal disorder [Not Recovered/Not Resolved]
